FAERS Safety Report 20693349 (Version 10)
Quarter: 2023Q4

REPORT INFORMATION
  Report Type: Spontaneous
  Country: JP (occurrence: JP)
  Receive Date: 20220410
  Receipt Date: 20231011
  Transmission Date: 20240110
  Serious: Yes (Hospitalization, Other)
  Sender: FDA-Public Use
  Company Number: JP-BRISTOL-MYERS SQUIBB COMPANY-2022-010121

PATIENT
  Age: 46 Year
  Sex: Male
  Weight: 79.8 kg

DRUGS (27)
  1. ELIQUIS [Suspect]
     Active Substance: APIXABAN
     Indication: Thrombosis prophylaxis
     Dosage: 2X/DAY
     Route: 048
     Dates: start: 20220111, end: 20220227
  2. ELIQUIS [Suspect]
     Active Substance: APIXABAN
     Dosage: 2X/DAY
     Route: 048
     Dates: start: 20220302, end: 20220310
  3. ELIQUIS [Suspect]
     Active Substance: APIXABAN
     Dosage: 2X/DAY
     Route: 048
     Dates: start: 20220406
  4. ELIQUIS [Suspect]
     Active Substance: APIXABAN
     Dosage: 2X/DAY
     Route: 048
     Dates: start: 20220407, end: 20220413
  5. ELIQUIS [Suspect]
     Active Substance: APIXABAN
     Route: 048
     Dates: start: 20220413
  6. ELIQUIS [Suspect]
     Active Substance: APIXABAN
     Route: 048
     Dates: start: 20210913
  7. RUPATADINE FUMARATE [Concomitant]
     Active Substance: RUPATADINE FUMARATE
     Indication: Rhinitis allergic
     Dates: start: 20210207
  8. M MAGNESIUM OXIDE [Concomitant]
     Indication: Constipation
     Dates: start: 20220224
  9. M MAGNESIUM OXIDE [Concomitant]
     Dates: start: 20210617
  10. LANSOPRAZOLE [Concomitant]
     Active Substance: LANSOPRAZOLE
     Indication: Prophylaxis against gastrointestinal ulcer
     Dates: start: 20211228, end: 20220224
  11. LANSOPRAZOLE [Concomitant]
     Active Substance: LANSOPRAZOLE
     Indication: Chronic gastritis
     Dates: start: 20220225
  12. METHYLCOBALAMIN [Concomitant]
     Active Substance: METHYLCOBALAMIN
     Indication: Cubital tunnel syndrome
     Dates: start: 20211014
  13. METHYLCOBALAMIN [Concomitant]
     Active Substance: METHYLCOBALAMIN
     Dosage: TID, 1 TABLET PER TIME
     Route: 048
     Dates: start: 20220512
  14. TRAMADOL HYDROCHLORIDE [Concomitant]
     Active Substance: TRAMADOL HYDROCHLORIDE
     Indication: Haemophilic arthropathy
     Dates: start: 20220228
  15. TRAMADOL HYDROCHLORIDE [Concomitant]
     Active Substance: TRAMADOL HYDROCHLORIDE
     Dates: start: 20210906
  16. TRAMADOL HYDROCHLORIDE [Concomitant]
     Active Substance: TRAMADOL HYDROCHLORIDE
     Dates: end: 20220309
  17. TRAMADOL HYDROCHLORIDE [Concomitant]
     Active Substance: TRAMADOL HYDROCHLORIDE
     Dosage: INCREASE FROM 100MG TO 150MG
     Dates: start: 20220310, end: 20220317
  18. TRAMADOL HYDROCHLORIDE [Concomitant]
     Active Substance: TRAMADOL HYDROCHLORIDE
     Dosage: 4X/DAY
  19. FERROUS CITRATE [Concomitant]
     Active Substance: FERROUS CITRATE
     Indication: Iron deficiency anaemia
     Dates: start: 20220203
  20. COMIRNATY (TOZINAMERAN) [Concomitant]
     Active Substance: TOZINAMERAN
     Indication: COVID-19 prophylaxis
     Route: 030
     Dates: start: 20220225, end: 20220225
  21. TOCOPHEROL [Concomitant]
     Active Substance: TOCOPHEROL
     Indication: Eczema
     Dates: start: 20220217
  22. ASPIRIN [Concomitant]
     Active Substance: ASPIRIN
     Indication: Thrombosis prophylaxis
     Route: 048
     Dates: start: 20210913
  23. RIVAROXABAN [Concomitant]
     Active Substance: RIVAROXABAN
     Indication: Anticoagulant therapy
     Route: 048
     Dates: start: 20210916, end: 20211208
  24. RIVAROXABAN [Concomitant]
     Active Substance: RIVAROXABAN
     Route: 048
     Dates: start: 20211209, end: 20211210
  25. RIVAROXABAN [Concomitant]
     Active Substance: RIVAROXABAN
     Route: 048
     Dates: start: 20211213, end: 20211214
  26. RIVAROXABAN [Concomitant]
     Active Substance: RIVAROXABAN
     Route: 048
     Dates: start: 20211216, end: 20211228
  27. MELOXICAM [Concomitant]
     Active Substance: MELOXICAM

REACTIONS (11)
  - Deep vein thrombosis [Not Recovered/Not Resolved]
  - Drug ineffective [Unknown]
  - Drug-induced liver injury [Unknown]
  - Oedema peripheral [Unknown]
  - Limb discomfort [Unknown]
  - Product dose omission in error [Recovered/Resolved]
  - Incorrect dosage administered [Unknown]
  - Pain in extremity [Unknown]
  - Malaise [Unknown]
  - Physical deconditioning [Recovering/Resolving]
  - Dehydration [Not Recovered/Not Resolved]

NARRATIVE: CASE EVENT DATE: 20220128
